FAERS Safety Report 20336751 (Version 1)
Quarter: 2022Q1

REPORT INFORMATION
  Report Type: Spontaneous
  Country: US (occurrence: US)
  Receive Date: 20220114
  Receipt Date: 20220114
  Transmission Date: 20220424
  Serious: No
  Sender: FDA-Public Use
  Company Number: US-LANNETT COMPANY, INC.-US-2021LAN000097

PATIENT
  Sex: Female

DRUGS (2)
  1. URSODIOL [Suspect]
     Active Substance: URSODIOL
     Indication: Product used for unknown indication
     Dosage: 15 MG/KG, UNK
     Route: 065
     Dates: start: 20190801
  2. OCALIVA [Suspect]
     Active Substance: OBETICHOLIC ACID
     Indication: Primary biliary cholangitis
     Dosage: 5 MG, UNK
     Route: 048
     Dates: start: 20200101, end: 20200901

REACTIONS (2)
  - Blood bilirubin abnormal [Recovered/Resolved]
  - Blood alkaline phosphatase increased [Recovered/Resolved]
